FAERS Safety Report 4348067-3 (Version None)
Quarter: 2004Q2

REPORT INFORMATION
  Report Type: 
  Country: None (occurrence: None)
  Receive Date: 20040422
  Receipt Date: 20040412
  Transmission Date: 20050107
  Serious: Yes (Disabling)
  Sender: FDA-Public Use
  Company Number: FRWYE702114APR04

PATIENT
  Sex: Male

DRUGS (1)
  1. RAPAMUNE [Suspect]
     Route: 048

REACTIONS (2)
  - BONE PAIN [None]
  - FRACTURE [None]
